FAERS Safety Report 4600500-5 (Version None)
Quarter: 2005Q1

REPORT INFORMATION
  Report Type: 
  Country: None (occurrence: None)
  Receive Date: 20050304
  Receipt Date: 20041217
  Transmission Date: 20050727
  Serious: Yes (Death, Other)
  Sender: FDA-Public Use
  Company Number: 2005021534

PATIENT
  Sex: Female

DRUGS (1)
  1. BEXTRA [Suspect]
     Indication: POST PROCEDURAL PAIN
     Dates: start: 20040101, end: 20040101

REACTIONS (5)
  - HYPERSENSITIVITY [None]
  - PAIN [None]
  - RASH [None]
  - RENAL FAILURE [None]
  - WOUND [None]
